FAERS Safety Report 8620068-6 (Version None)
Quarter: 2012Q3

REPORT INFORMATION
  Report Type: 
  Country: None (occurrence: None)
  Receive Date: 20120824
  Receipt Date: 20120816
  Transmission Date: 20120928
  Serious: Yes (Hospitalization)
  Sender: FDA-Public Use
  Company Number: US-JNJFOC-20120809964

PATIENT
  Sex: Female
  Weight: 61.5 kg

DRUGS (7)
  1. MULTI-VITAMINS [Concomitant]
  2. PROBIOTICS [Concomitant]
  3. REMICADE [Suspect]
     Indication: INFLAMMATORY BOWEL DISEASE
     Route: 042
     Dates: start: 20081202
  4. ANTIBIOTICS [Concomitant]
     Indication: INFLAMMATORY BOWEL DISEASE
  5. HUMIRA [Concomitant]
     Indication: INFLAMMATORY BOWEL DISEASE
     Dates: start: 20090903
  6. LOPERAMIDE [Concomitant]
  7. CALCIUM CARBONATE [Concomitant]

REACTIONS (1)
  - HYPONATRAEMIA [None]
